FAERS Safety Report 10107335 (Version 2)
Quarter: 2014Q2

REPORT INFORMATION
  Report Type: Spontaneous
  Country: JP (occurrence: JP)
  Receive Date: 20140424
  Receipt Date: 20140424
  Transmission Date: 20141212
  Serious: Yes (Death, Hospitalization, Other)
  Sender: FDA-Public Use
  Company Number: JP-009507513-1403JPN002249

PATIENT
  Age: 70 Year
  Sex: Female
  Weight: 40 kg

DRUGS (11)
  1. CANCIDAS FOR INTRAVENOUS DRIP INFUSION 50MG [Suspect]
     Indication: OESOPHAGEAL CANDIDIASIS
     Dosage: 50 MG, QD
     Route: 041
     Dates: start: 20130912, end: 20130918
  2. FUROSEMIDE [Concomitant]
     Indication: CARDIAC FAILURE
     Dosage: 20 MG, TID
     Route: 048
     Dates: start: 20130823, end: 20130920
  3. ALDACTONE A [Concomitant]
     Indication: CARDIAC FAILURE
     Dosage: 200 MG, TID
     Route: 048
     Dates: start: 20130823, end: 20130920
  4. NEXIUM [Concomitant]
     Indication: GASTRITIS
     Dosage: 20 MG, QD
     Route: 048
     Dates: start: 20130822, end: 20131119
  5. SAMSCA [Concomitant]
     Indication: CARDIAC FAILURE
     Dosage: 15 MG, QD
     Route: 048
     Dates: start: 20130830, end: 20131001
  6. MIYA BM [Concomitant]
     Indication: PROPHYLAXIS
     Dosage: 1 G, TID
     Route: 048
     Dates: start: 20130903, end: 20131119
  7. FLUITRAN [Concomitant]
     Indication: CARDIAC FAILURE
     Dosage: 2 MG, BID
     Route: 048
     Dates: start: 20130910, end: 20130920
  8. ARTIST [Concomitant]
     Indication: HYPERTENSION
     Dosage: 2.5 MG, QD
     Route: 048
     Dates: start: 20130911, end: 20131112
  9. BACTRAMIN [Concomitant]
     Indication: PROPHYLAXIS
     Dosage: 0.5 G, QD
     Route: 048
     Dates: start: 20130911, end: 20131108
  10. PREDNISOLONE [Concomitant]
     Indication: IMMUNE THROMBOCYTOPENIC PURPURA
     Dosage: 10 MG, QD
     Route: 048
     Dates: start: 20130911, end: 20131002
  11. BROTIZOLAM [Concomitant]
     Indication: INSOMNIA
     Dosage: 0.3 MG, QD
     Route: 048
     Dates: start: 20130911, end: 20130924

REACTIONS (3)
  - Immune thrombocytopenic purpura [Fatal]
  - Sepsis [Recovered/Resolved]
  - Neutrophil count increased [Not Recovered/Not Resolved]
